FAERS Safety Report 6139842-3 (Version None)
Quarter: 2009Q1

REPORT INFORMATION
  Report Type: 
  Country: None (occurrence: None)
  Receive Date: 20090324
  Receipt Date: 20090326
  Transmission Date: 20090719
  Serious: Yes (Life-Threatening)
  Sender: FDA-Public Use
  Company Number: GXKR2009DE03787

PATIENT
  Age: 85 Year
  Sex: Female
  Weight: 70 kg

DRUGS (11)
  1. CARVEDILOL [Suspect]
     Indication: CARDIAC FAILURE
     Dosage: 6.25 MG, BID, ORAL
     Route: 048
     Dates: start: 20081107, end: 20081214
  2. ENALAPRIL MALEATE [Suspect]
     Indication: CARDIAC FAILURE
     Dosage: 2.5 MG, BID, ORAL
     Route: 048
     Dates: start: 20081107, end: 20081214
  3. LANTUS [Suspect]
     Indication: TYPE 2 DIABETES MELLITUS
     Dosage: 16 IU, QD, SUBCUTANEOUS
     Route: 058
     Dates: start: 20000101
  4. NOVOMIX (INSULIN ASPART) [Suspect]
     Indication: TYPE 2 DIABETES MELLITUS
     Dosage: 26 2.6 IU, SUBCUTANEOUS
     Route: 058
     Dates: start: 20000101, end: 20081214
  5. REPAGLINIDE [Suspect]
     Indication: TYPE 2 DIABETES MELLITUS
     Dosage: 2 MG, TID, ORAL
     Route: 048
     Dates: start: 20000101, end: 20081214
  6. ALLOPURINOL [Concomitant]
  7. DIGITOXIN INJ [Concomitant]
  8. L-THYROXINE (LEVOTHYROXINE) [Concomitant]
  9. OMEPRAZOLE [Concomitant]
  10. SPIRONOLACTONE [Concomitant]
  11. TORSEMIDE [Concomitant]

REACTIONS (2)
  - DRUG INTERACTION [None]
  - HYPOGLYCAEMIA [None]
